FAERS Safety Report 16878126 (Version 2)
Quarter: 2019Q4

REPORT INFORMATION
  Report Type: Spontaneous
  Country: JP (occurrence: JP)
  Receive Date: 20191002
  Receipt Date: 20191119
  Transmission Date: 20200122
  Serious: Yes (Life-Threatening)
  Sender: FDA-Public Use
  Company Number: JP-JNJFOC-20190939358

PATIENT
  Age: 76 Year
  Sex: Male

DRUGS (8)
  1. MERISLON [Concomitant]
     Active Substance: BETAHISTINE MESILATE
  2. METHYCOOL [Concomitant]
     Active Substance: METHYLCOBALAMIN
  3. GLIMEPIRIDE. [Concomitant]
     Active Substance: GLIMEPIRIDE
  4. MAINTATE [Concomitant]
     Active Substance: BISOPROLOL FUMARATE
  5. FRANDOL S [Concomitant]
     Active Substance: ISOSORBIDE DINITRATE
  6. RIVAROXABAN [Suspect]
     Active Substance: RIVAROXABAN
     Indication: ANTICOAGULANT THERAPY
     Route: 048
     Dates: end: 20150627
  7. VASOLANDE [Concomitant]
  8. JANUVIA [Concomitant]
     Active Substance: SITAGLIPTIN PHOSPHATE

REACTIONS (1)
  - Embolic cerebral infarction [Recovered/Resolved with Sequelae]

NARRATIVE: CASE EVENT DATE: 20150627
